FAERS Safety Report 21451398 (Version 1)
Quarter: 2022Q4

REPORT INFORMATION
  Report Type: Spontaneous
  Country: US (occurrence: US)
  Receive Date: 20221013
  Receipt Date: 20221013
  Transmission Date: 20230112
  Serious: No
  Sender: FDA-Public Use
  Company Number: US-INDIVIOR US-INDV-134153-2022

PATIENT
  Sex: Female

DRUGS (1)
  1. SUBOXONE [Suspect]
     Active Substance: BUPRENORPHINE HYDROCHLORIDE\NALOXONE HYDROCHLORIDE
     Indication: Product used for unknown indication
     Dosage: 8MILLIGRAM, TWO FILMS ONCE A DAY
     Route: 065

REACTIONS (2)
  - Food allergy [Not Recovered/Not Resolved]
  - Fabry^s disease [Not Recovered/Not Resolved]

NARRATIVE: CASE EVENT DATE: 20210101
